FAERS Safety Report 5433211-7 (Version None)
Quarter: 2007Q3

REPORT INFORMATION
  Report Type: 
  Country: None (occurrence: None)
  Receive Date: 20070831
  Receipt Date: 20070605
  Transmission Date: 20080115
  Serious: No
  Sender: FDA-Public Use
  Company Number: A0654060A

PATIENT
  Sex: Male

DRUGS (1)
  1. ALLI [Suspect]

REACTIONS (4)
  - BURNING SENSATION [None]
  - CHAPPED LIPS [None]
  - CHEILITIS [None]
  - LIP PAIN [None]
